FAERS Safety Report 6430532-6 (Version None)
Quarter: 2009Q4

REPORT INFORMATION
  Report Type: 
  Country: None (occurrence: None)
  Receive Date: 20091106
  Receipt Date: 20091028
  Transmission Date: 20100525
  Serious: Yes (Other)
  Sender: FDA-Public Use
  Company Number: A0812496A

PATIENT
  Age: 74 Year
  Sex: Female

DRUGS (5)
  1. PROMACTA [Suspect]
     Indication: IDIOPATHIC THROMBOCYTOPENIC PURPURA
     Dosage: 50MG PER DAY
     Route: 048
     Dates: start: 20090612, end: 20090801
  2. CORTICOSTEROIDS [Concomitant]
     Indication: IDIOPATHIC THROMBOCYTOPENIC PURPURA
  3. CYCLOPHOSPHAMIDE [Concomitant]
  4. IMMUNE GLOBULIN INTRAVENOUS (HUMAN) [Concomitant]
  5. RITUXIMAB [Concomitant]

REACTIONS (8)
  - ACUTE LYMPHOCYTIC LEUKAEMIA [None]
  - ANAEMIA [None]
  - CARDIAC FAILURE CONGESTIVE [None]
  - DRUG INEFFECTIVE [None]
  - FATIGUE [None]
  - MYELODYSPLASTIC SYNDROME [None]
  - PALLOR [None]
  - THROMBOCYTOPENIA [None]
